FAERS Safety Report 7976722-2 (Version None)
Quarter: 2011Q4

REPORT INFORMATION
  Report Type: 
  Country: None (occurrence: None)
  Receive Date: 20111213
  Receipt Date: 20111108
  Transmission Date: 20120403
  Serious: No
  Sender: FDA-Public Use
  Company Number: US-AMGEN-USASP2011045011

PATIENT
  Age: 58 Year
  Sex: Female
  Weight: 99.773 kg

DRUGS (12)
  1. ENBREL [Suspect]
     Indication: RHEUMATOID ARTHRITIS
     Dosage: 50 MG, QWK
     Dates: start: 20110811
  2. PRIMIDONE [Concomitant]
     Dosage: 250 MG, UNK
     Route: 048
  3. LISINOPRIL [Concomitant]
     Dosage: 10 MG, UNK
     Route: 048
  4. FENOFIBRATE [Concomitant]
     Dosage: 134 MG, UNK
     Route: 048
  5. ETODOLAC [Concomitant]
     Dosage: 200 MG, UNK
     Route: 048
  6. NOVOLOG [Concomitant]
     Dosage: 100 MG, UNK
  7. BYETTA [Concomitant]
     Dosage: 5 MUG, UNK
  8. DULERA ORAL INHALATION [Concomitant]
     Dosage: 5 MUG, UNK
  9. METFORMIN HCL [Concomitant]
     Dosage: 500 MG, UNK
     Route: 048
  10. PRILOSEC [Concomitant]
     Dosage: 20 MG, UNK
     Route: 048
  11. SULFASALAZINE [Concomitant]
     Dosage: 500 MG, UNK
     Route: 048
  12. TYLENOL (CAPLET) [Concomitant]
     Dosage: 650 MG, UNK
     Route: 048

REACTIONS (1)
  - BRONCHITIS [None]
